FAERS Safety Report 24576776 (Version 2)
Quarter: 2025Q2

REPORT INFORMATION
  Report Type: Spontaneous
  Country: CN (occurrence: CN)
  Receive Date: 20241104
  Receipt Date: 20250608
  Transmission Date: 20250716
  Serious: Yes (Hospitalization)
  Sender: COHERUS
  Company Number: CN-SHANGHAI JUNSHI BIOSCIENCES CO., LTD.-CN2024011842

PATIENT

DRUGS (3)
  1. TORIPALIMAB [Suspect]
     Active Substance: TORIPALIMAB
     Indication: Nasopharyngeal tumour
     Route: 041
     Dates: start: 20240201
  2. LOBAPLATIN [Suspect]
     Active Substance: LOBAPLATIN
     Indication: Nasopharyngeal tumour
     Route: 041
     Dates: start: 20240202
  3. GEMCITABINE HYDROCHLORIDE [Suspect]
     Active Substance: GEMCITABINE HYDROCHLORIDE
     Indication: Nasopharyngeal tumour
     Route: 041
     Dates: start: 20240201, end: 20240201

REACTIONS (1)
  - Myelosuppression [Recovering/Resolving]

NARRATIVE: CASE EVENT DATE: 20240207
